FAERS Safety Report 23437466 (Version 2)
Quarter: 2024Q1

REPORT INFORMATION
  Report Type: Report from Study
  Country: CA (occurrence: CA)
  Receive Date: 20240124
  Receipt Date: 20240319
  Transmission Date: 20240410
  Serious: Yes (Other)
  Sender: FDA-Public Use
  Company Number: CA-SANDOZ-SDZ2024CA006805

PATIENT
  Sex: Female

DRUGS (3)
  1. HYRIMOZ [Suspect]
     Active Substance: ADALIMUMAB-ADAZ
     Indication: Hidradenitis
     Dosage: 40 MG
     Route: 058
     Dates: start: 20220228
  2. CLOTRIMAZOLE [Concomitant]
     Active Substance: CLOTRIMAZOLE
     Indication: Hidradenitis
     Dosage: UNK
     Route: 061
  3. MOMETASONE [Concomitant]
     Active Substance: MOMETASONE
     Indication: Hidradenitis
     Dosage: UNK
     Route: 061

REACTIONS (2)
  - Respiratory failure [Not Recovered/Not Resolved]
  - Respiratory tract infection [Not Recovered/Not Resolved]
